FAERS Safety Report 10599427 (Version 2)
Quarter: 2014Q4

REPORT INFORMATION
  Report Type: Report from Study
  Country: IT (occurrence: IT)
  Receive Date: 20141121
  Receipt Date: 20141121
  Transmission Date: 20150529
  Serious: Yes (Death, Life-Threatening, Hospitalization, Other)
  Sender: FDA-Public Use
  Company Number: IT-GLAXOSMITHKLINE-Z0016378A

PATIENT

DRUGS (12)
  1. OFATUMUMAB [Suspect]
     Active Substance: OFATUMUMAB
     Indication: CHRONIC LYMPHOCYTIC LEUKAEMIA
     Dosage: 300 MG, SINGLE
     Route: 042
     Dates: start: 20101207, end: 20101207
  2. FLUDARABINE PHOSPHATE. [Suspect]
     Active Substance: FLUDARABINE PHOSPHATE
     Indication: CHRONIC LYMPHOCYTIC LEUKAEMIA
     Dosage: 25 MG/M2, CYC
     Route: 042
     Dates: start: 20101207, end: 20101209
  3. RED BLOOD CELLS [Concomitant]
     Active Substance: HUMAN RED BLOOD CELL
     Indication: RED BLOOD CELL COUNT DECREASED
     Dosage: 1 UNK, QD
     Route: 042
     Dates: start: 20120706, end: 20120706
  4. FLUDARABINE PHOSPHATE. [Suspect]
     Active Substance: FLUDARABINE PHOSPHATE
     Dosage: 15 MG/M2, CYC
     Route: 042
     Dates: start: 20110412, end: 20110512
  5. CYCLOPHOSPHAMIDE. [Suspect]
     Active Substance: CYCLOPHOSPHAMIDE
     Dosage: 200 MG, CYC
     Route: 042
     Dates: start: 20110111, end: 20110310
  6. OFATUMUMAB [Suspect]
     Active Substance: OFATUMUMAB
     Dosage: 1000 MG, CYC
     Route: 042
     Dates: start: 20101216, end: 20110510
  7. CYCLOPHOSPHAMIDE. [Suspect]
     Active Substance: CYCLOPHOSPHAMIDE
     Indication: CHRONIC LYMPHOCYTIC LEUKAEMIA
     Dosage: 250 MG/M2, CYC
     Route: 042
     Dates: start: 20101207, end: 20101209
  8. FLUDARABINE PHOSPHATE. [Suspect]
     Active Substance: FLUDARABINE PHOSPHATE
     Dosage: 20 MG/M2, CYC
     Route: 042
     Dates: start: 20101211, end: 20110310
  9. CYCLOPHOSPHAMIDE. [Suspect]
     Active Substance: CYCLOPHOSPHAMIDE
     Dosage: 150 MG/M2, CYC
     Route: 042
     Dates: start: 20110412, end: 20110512
  10. LASIX [Concomitant]
     Active Substance: FUROSEMIDE
     Indication: FLUID RETENTION
     Dosage: 125 MG, QD
     Route: 042
     Dates: start: 20120704, end: 20120704
  11. DIFLUCAN [Concomitant]
     Active Substance: FLUCONAZOLE
     Indication: ANTIFUNGAL PROPHYLAXIS
     Dosage: 400 MG, QD
     Route: 048
     Dates: start: 20120704, end: 20120704
  12. MEPRAL [Concomitant]
     Active Substance: OMEPRAZOLE SODIUM
     Indication: PROPHYLAXIS AGAINST GASTROINTESTINAL ULCER
     Dosage: 40 MG, 1D
     Route: 042
     Dates: start: 20120706, end: 20120706

REACTIONS (3)
  - Myelodysplastic syndrome [Not Recovered/Not Resolved]
  - Interstitial lung disease [Not Recovered/Not Resolved]
  - Acute myocardial infarction [Fatal]

NARRATIVE: CASE EVENT DATE: 20120629
